FAERS Safety Report 10056934 (Version 2)
Quarter: 2014Q2

REPORT INFORMATION
  Report Type: Spontaneous
  Country: CA (occurrence: CA)
  Receive Date: 20140403
  Receipt Date: 20140606
  Transmission Date: 20141212
  Serious: Yes (Hospitalization, Other)
  Sender: FDA-Public Use
  Company Number: CA-GILEAD-2014-0098177

PATIENT
  Age: 68 Year
  Sex: Female
  Weight: 81.8 kg

DRUGS (1)
  1. AMBRISENTAN [Suspect]
     Indication: PULMONARY ARTERIAL HYPERTENSION
     Dosage: 10MG PER DAY
     Route: 048
     Dates: start: 20131127

REACTIONS (2)
  - Coronary arterial stent insertion [Recovering/Resolving]
  - Myocardial infarction [Recovered/Resolved]
